FAERS Safety Report 20428555 (Version 2)
Quarter: 2022Q1

REPORT INFORMATION
  Report Type: Spontaneous
  Country: IL (occurrence: None)
  Receive Date: 20220204
  Receipt Date: 20220209
  Transmission Date: 20220423
  Serious: Yes (Other)
  Sender: FDA-Public Use
  Company Number: 2022A051171

PATIENT
  Sex: Male

DRUGS (1)
  1. OLAPARIB [Suspect]
     Active Substance: OLAPARIB
     Indication: Pancreatic carcinoma
     Route: 048

REACTIONS (2)
  - Pulmonary mass [Unknown]
  - Off label use [Unknown]
